FAERS Safety Report 6954182-8 (Version None)
Quarter: 2010Q3

REPORT INFORMATION
  Report Type: 
  Country: None (occurrence: None)
  Receive Date: 20100829
  Receipt Date: 20100708
  Transmission Date: 20110219
  Serious: No
  Sender: FDA-Public Use
  Company Number: US-ABBOTT-10P-163-0656135-00

PATIENT
  Sex: Female
  Weight: 63.56 kg

DRUGS (4)
  1. NIASPAN [Suspect]
     Indication: BLOOD CHOLESTEROL INCREASED
     Dosage: AT BEDTIME
  2. NIASPAN [Suspect]
     Dosage: AT BEDTIME
  3. UNKNOWN MEDICATIONS [Concomitant]
     Indication: BLOOD PRESSURE
  4. FISH OIL [Concomitant]
     Indication: PRODUCT USED FOR UNKNOWN INDICATION

REACTIONS (4)
  - ABDOMINAL PAIN UPPER [None]
  - FEELING HOT [None]
  - HYPERHIDROSIS [None]
  - SKIN BURNING SENSATION [None]
